FAERS Safety Report 18343060 (Version 1)
Quarter: 2020Q4

REPORT INFORMATION
  Report Type: Spontaneous
  Country: US (occurrence: US)
  Receive Date: 20201002
  Receipt Date: 20201002
  Transmission Date: 20210113
  Serious: Yes (Other)
  Sender: FDA-Public Use
  Company Number: None

PATIENT
  Age: 35 Year
  Sex: Female
  Weight: 76.5 kg

DRUGS (1)
  1. ORILISSA [Suspect]
     Active Substance: ELAGOLIX SODIUM
     Indication: ENDOMETRIOSIS
     Route: 048
     Dates: start: 20200920, end: 20200922

REACTIONS (7)
  - Dyspnoea [None]
  - Nausea [None]
  - Speech disorder [None]
  - Arthralgia [None]
  - Anxiety [None]
  - Diarrhoea [None]
  - Aphasia [None]

NARRATIVE: CASE EVENT DATE: 20200922
